FAERS Safety Report 6992022-1 (Version None)
Quarter: 2010Q3

REPORT INFORMATION
  Report Type: 
  Country: None (occurrence: None)
  Receive Date: 20100917
  Receipt Date: 20100908
  Transmission Date: 20110219
  Serious: Yes (Other)
  Sender: FDA-Public Use
  Company Number: JP-PFIZER INC-2010113124

PATIENT
  Age: 59 Year
  Sex: Female

DRUGS (2)
  1. METHYLPREDNISOLONE SODIUM SUCCINATE [Suspect]
     Indication: EOSINOPHILIC PNEUMONIA
     Dosage: 1 G/DAY
  2. CICLOSPORIN [Concomitant]
     Indication: EOSINOPHILIC PNEUMONIA
     Dosage: UNK

REACTIONS (2)
  - PULMONARY EMBOLISM [None]
  - THROMBOSIS [None]
